FAERS Safety Report 5690531-9 (Version None)
Quarter: 2008Q1

REPORT INFORMATION
  Report Type: 
  Country: None (occurrence: None)
  Receive Date: 20080331
  Receipt Date: 20080331
  Transmission Date: 20080703
  Serious: Yes (Life-Threatening, Disabling, Other)
  Sender: FDA-Public Use
  Company Number: None

PATIENT
  Age: 60 Year
  Sex: Male
  Weight: 130.6359 kg

DRUGS (2)
  1. LITHIUM CARBONATE [Suspect]
     Indication: MOOD SWINGS
     Dosage: 2 TABS 3 TIMES A DAY PO
     Route: 048
     Dates: start: 19900216, end: 20080328
  2. SINGULAIR [Concomitant]

REACTIONS (5)
  - ANXIETY [None]
  - DISORIENTATION [None]
  - DIZZINESS [None]
  - LOGORRHOEA [None]
  - PANIC DISORDER [None]
